FAERS Safety Report 26111272 (Version 1)
Quarter: 2025Q4

REPORT INFORMATION
  Report Type: Spontaneous
  Country: TW (occurrence: TW)
  Receive Date: 20251202
  Receipt Date: 20251202
  Transmission Date: 20260118
  Serious: Yes (Hospitalization, Other)
  Sender: UNICHEM
  Company Number: TW-UNICHEM LABORATORIES LIMITED-UNI-2025-TW-003967

PATIENT

DRUGS (21)
  1. CELECOXIB [Interacting]
     Active Substance: CELECOXIB
     Indication: Pyrexia
     Dosage: 200 MILLIGRAM, QD
     Route: 065
  2. CELECOXIB [Interacting]
     Active Substance: CELECOXIB
     Indication: Pain
  3. LITHIUM [Interacting]
     Active Substance: LITHIUM
     Indication: Mood swings
     Dosage: 600 MILLIGRAM, BID
     Route: 065
  4. PALIPERIDONE [Concomitant]
     Active Substance: PALIPERIDONE
     Indication: Psychotic symptom
     Dosage: 6 MILLIGRAM, BID
     Route: 065
  5. CARBAMAZEPINE [Concomitant]
     Active Substance: CARBAMAZEPINE
     Indication: Mood swings
     Dosage: 400 MILLIGRAM, BID
     Route: 065
  6. TOPIRAMATE [Concomitant]
     Active Substance: TOPIRAMATE
     Indication: Mood swings
     Dosage: 100 MILLIGRAM, QD
     Route: 065
  7. CLOZAPINE [Concomitant]
     Active Substance: CLOZAPINE
     Indication: Psychotic symptom
     Dosage: 100 MILLIGRAM, BID
     Route: 065
  8. CLOZAPINE [Concomitant]
     Active Substance: CLOZAPINE
     Dosage: 350 MILLIGRAM, HS
     Route: 065
  9. LORAZEPAM [Concomitant]
     Active Substance: LORAZEPAM
     Indication: Sedation
     Dosage: UNK, PRN
     Route: 065
     Dates: start: 20240618
  10. HALOPERIDOL [Concomitant]
     Active Substance: HALOPERIDOL
     Indication: Sedation
     Dosage: UNK, PRN
     Route: 065
     Dates: start: 20240618
  11. TRIHEXYPHENIYDYL [Concomitant]
     Indication: Extrapyramidal disorder
     Dosage: UNK
     Route: 065
     Dates: start: 20240618
  12. BISACODYL [Concomitant]
     Active Substance: BISACODYL
     Indication: Constipation
     Dosage: UNK
     Route: 065
  13. MAGNESIUM OXIDE [Concomitant]
     Active Substance: MAGNESIUM OXIDE
     Indication: Constipation
     Dosage: UNK
     Route: 065
  14. DESMOPRESSIN [Concomitant]
     Active Substance: DESMOPRESSIN
     Indication: Enuresis
     Dosage: UNK
     Route: 065
  15. DESMOPRESSIN [Concomitant]
     Active Substance: DESMOPRESSIN
     Indication: Nocturia
  16. VITAMIN B [Concomitant]
     Active Substance: VITAMIN B
     Indication: Nervous system disorder prophylaxis
     Dosage: UNK
     Route: 065
  17. ESTAZOLAM [Concomitant]
     Active Substance: ESTAZOLAM
     Indication: Sleep disorder
     Dosage: UNK
     Route: 065
  18. CLONAZEPAM [Concomitant]
     Active Substance: CLONAZEPAM
     Indication: Restlessness
     Dosage: UNK
     Route: 065
  19. LEVOFLOXACIN [Concomitant]
     Active Substance: LEVOFLOXACIN
     Indication: Antibiotic prophylaxis
     Dosage: UNK
     Route: 065
     Dates: start: 20240618
  20. ACETAMINOPHEN [Concomitant]
     Active Substance: ACETAMINOPHEN
     Indication: Pyrexia
     Dosage: UNK
     Route: 065
  21. ACETAMINOPHEN [Concomitant]
     Active Substance: ACETAMINOPHEN
     Indication: Pain

REACTIONS (11)
  - Electrocardiogram QT prolonged [Recovering/Resolving]
  - Tachycardia [Recovering/Resolving]
  - Confusional state [Recovering/Resolving]
  - Oedema peripheral [Recovering/Resolving]
  - Tremor [Recovering/Resolving]
  - Lethargy [Recovering/Resolving]
  - Oxygen saturation decreased [Recovering/Resolving]
  - Muscular weakness [Recovering/Resolving]
  - Somnolence [Recovering/Resolving]
  - Acute kidney injury [Recovering/Resolving]
  - Drug interaction [Unknown]

NARRATIVE: CASE EVENT DATE: 20240625
